FAERS Safety Report 14596926 (Version 1)
Quarter: 2018Q1

REPORT INFORMATION
  Report Type: Spontaneous
  Country: CN (occurrence: CN)
  Receive Date: 20180305
  Receipt Date: 20180305
  Transmission Date: 20180509
  Serious: Yes (Hospitalization, Other)
  Sender: FDA-Public Use
  Company Number: CN-ACCORD-063825

PATIENT
  Age: 65 Year
  Sex: Female

DRUGS (7)
  1. METHYLPREDNISOLONE. [Concomitant]
     Active Substance: METHYLPREDNISOLONE
     Indication: RHEUMATOID ARTHRITIS
     Route: 048
  2. LEFLUNOMIDE. [Interacting]
     Active Substance: LEFLUNOMIDE
     Indication: RHEUMATOID ARTHRITIS
     Route: 048
  3. METHOTREXATE. [Suspect]
     Active Substance: METHOTREXATE
     Indication: RHEUMATOID ARTHRITIS
     Route: 048
  4. CALCIUM CARBONATE/COLECALCIFEROL [Concomitant]
     Indication: ADJUVANT THERAPY
     Dosage: CALCIUM CARBONATE 600 MG +COLECALCIFEROL 125 IU
     Route: 048
  5. CELECOXIB. [Interacting]
     Active Substance: CELECOXIB
     Indication: RHEUMATOID ARTHRITIS
     Route: 048
  6. PANTOPRAZOLE [Concomitant]
     Active Substance: PANTOPRAZOLE
     Indication: ADJUVANT THERAPY
     Route: 048
  7. TEPRENONE [Concomitant]
     Active Substance: TEPRENONE
     Indication: ADJUVANT THERAPY
     Route: 048

REACTIONS (7)
  - Drug interaction [Unknown]
  - Nephropathy toxic [Recovered/Resolved]
  - Bone marrow failure [Recovered/Resolved]
  - Cholecystitis acute [Recovered/Resolved]
  - Lung infection [Recovered/Resolved]
  - Hepatotoxicity [Recovered/Resolved]
  - Gastrointestinal haemorrhage [Recovered/Resolved]
